FAERS Safety Report 9582397 (Version 2)
Quarter: 2013Q4

REPORT INFORMATION
  Report Type: Spontaneous
  Country: US (occurrence: US)
  Receive Date: 20131002
  Receipt Date: 20131002
  Transmission Date: 20140711
  Serious: Yes (Other)
  Sender: FDA-Public Use
  Company Number: US-EXELIXIS-CABO-13002790

PATIENT
  Age: 63 Year
  Sex: Male
  Weight: 78.9 kg

DRUGS (14)
  1. COMETRIQ [Suspect]
     Indication: THYROID CANCER
     Dosage: 140 MG, QD
     Route: 048
     Dates: start: 20130315, end: 20130422
  2. COMETRIQ [Suspect]
     Dosage: 140 MG, QOD
     Route: 048
     Dates: start: 20130523
  3. CALCIUM CARBONATE [Suspect]
     Indication: HYPOCALCAEMIA
     Dosage: 8 G, QD
  4. MAG OXIDE [Concomitant]
  5. CALCITROL [Concomitant]
  6. LEVOTHYROXINE SODIUM [Concomitant]
  7. OMEPRAZOLE [Concomitant]
  8. CYCLOBENZAPRINE [Concomitant]
  9. LOPERAMIDE [Concomitant]
  10. OS-CAL+D [Concomitant]
  11. TRIAMCINOLONE [Concomitant]
  12. ASPIRIN [Concomitant]
  13. DICYCLOMINE [Concomitant]
  14. HYDROCODONE [Concomitant]

REACTIONS (5)
  - Nephrolithiasis [Recovered/Resolved]
  - Pelvic pain [Recovered/Resolved]
  - Liver disorder [Unknown]
  - Blood calcium decreased [Unknown]
  - Fluid intake reduced [Unknown]
